FAERS Safety Report 10025546 (Version 3)
Quarter: 2014Q2

REPORT INFORMATION
  Report Type: Spontaneous
  Country: JP (occurrence: JP)
  Receive Date: 20140320
  Receipt Date: 20140423
  Transmission Date: 20141212
  Serious: Yes (Hospitalization)
  Sender: FDA-Public Use
  Company Number: JP-PFIZER INC-2014078171

PATIENT
  Age: 84 Year
  Sex: Female

DRUGS (2)
  1. SELARA [Suspect]
     Indication: HYPERTENSION
     Dosage: 50 MG, DAILY
     Route: 048
     Dates: end: 20140313
  2. NORVASC OD [Suspect]
     Indication: HYPERTENSION
     Dosage: 5 MG, DAILY
     Route: 048

REACTIONS (2)
  - Hypokalaemia [Unknown]
  - Pneumonia [Recovered/Resolved]
